FAERS Safety Report 10969331 (Version 1)
Quarter: 2015Q1

REPORT INFORMATION
  Report Type: Spontaneous
  Country: GB (occurrence: GB)
  Receive Date: 20150331
  Receipt Date: 20150331
  Transmission Date: 20150721
  Serious: Yes (Other)
  Sender: FDA-Public Use
  Company Number: GB-CIPLA LTD.-2015GB02516

PATIENT

DRUGS (5)
  1. GRANULOCYTE COLONY STIMULATING FACTOR (G-CSF) [Concomitant]
  2. COTRIMOXAZOLE [Concomitant]
     Active Substance: SULFAMETHOXAZOLE\TRIMETHOPRIM
     Indication: PROPHYLAXIS
  3. FLUCONAZOLE. [Concomitant]
     Active Substance: FLUCONAZOLE
     Indication: PROPHYLAXIS
  4. ACICLOVIR [Concomitant]
     Active Substance: ACYCLOVIR
     Indication: PROPHYLAXIS
  5. GEMCITABINE [Suspect]
     Active Substance: GEMCITABINE\GEMCITABINE HYDROCHLORIDE
     Indication: MYCOSIS FUNGOIDES STAGE III
     Dosage: 1000 MG/M2 ON DAY 1, 8, AND 15 OF A 28-DAY CYCLE
     Route: 042

REACTIONS (9)
  - C-reactive protein increased [Recovered/Resolved]
  - Anaemia of chronic disease [Unknown]
  - Malaise [Unknown]
  - Vasculitis [Unknown]
  - Anaemia [Unknown]
  - Thrombocytosis [Unknown]
  - Decreased appetite [Unknown]
  - Pyrexia [Unknown]
  - Musculoskeletal discomfort [Unknown]
